FAERS Safety Report 23677731 (Version 3)
Quarter: 2025Q1

REPORT INFORMATION
  Report Type: Spontaneous
  Country: US (occurrence: US)
  Receive Date: 20240327
  Receipt Date: 20250306
  Transmission Date: 20250409
  Serious: Yes (Other)
  Sender: PFIZER
  Company Number: US-PFIZER INC-PV202400040478

PATIENT
  Age: 83 Year
  Sex: Male
  Weight: 95.25 kg

DRUGS (10)
  1. XELJANZ XR [Suspect]
     Active Substance: TOFACITINIB CITRATE
     Indication: Colitis ulcerative
     Dosage: 11 MG, DAILY
  2. OMEPRAZOLE [Concomitant]
     Active Substance: OMEPRAZOLE
     Indication: Gastrooesophageal reflux disease
     Dosage: 20 MG, 1X/DAY
  3. AMLODIPINE [Concomitant]
     Active Substance: AMLODIPINE BESYLATE
     Indication: Hypertension
     Dosage: 10 MG, 1X/DAY, IN AM
  4. LISINOPRIL [Concomitant]
     Active Substance: LISINOPRIL
     Indication: Hypertension
     Dosage: 40 MG, 1X/DAY, IN THE AM
  5. SULFASALAZINE [Concomitant]
     Active Substance: SULFASALAZINE
     Indication: Colitis
     Dosage: 500 MG, 2X/DAY, I TAKE THAT TWICE A DAY MORNING AND NIGHT
  6. POTASSIUM [Concomitant]
     Active Substance: POTASSIUM
     Dosage: 99 MG, DAILY, TAKE ONE AT NIGHT
  7. CRANBERRY [Concomitant]
     Active Substance: CRANBERRY
     Dosage: 15000 MG, DAILY, TAKE IT ONE AT NIGHT
  8. FIBER THERAPY (CALCIUM POLYCARBOPHIL) [Concomitant]
     Active Substance: CALCIUM POLYCARBOPHIL
     Dosage: 625 MG, 2X/DAY, 1 AM AND 1 PM
  9. CHOLECALCIFEROL [Concomitant]
     Active Substance: CHOLECALCIFEROL
     Dosage: 150 UG, 1X/DAY, TAKE AT 1 AM
  10. VITAMIN D3 [Concomitant]
     Active Substance: CHOLECALCIFEROL
     Indication: Solar lentigo
     Dosage: 50 MG, 1X/DAY, ONE AT 8 AM

REACTIONS (5)
  - Hip fracture [Unknown]
  - Fall [Unknown]
  - Cataract [Unknown]
  - Astigmatism [Unknown]
  - Dry eye [Unknown]
